FAERS Safety Report 4634159-8 (Version None)
Quarter: 2005Q2

REPORT INFORMATION
  Report Type: 
  Country: None (occurrence: None)
  Receive Date: 20050413
  Receipt Date: 20050401
  Transmission Date: 20051028
  Serious: Yes (Death)
  Sender: FDA-Public Use
  Company Number: JP-SOLVAY-00305001107

PATIENT
  Age: 65 Year
  Sex: Female
  Weight: 82 kg

DRUGS (4)
  1. FLUVOXAMINE MALEATE [Suspect]
     Indication: DEPRESSION
     Dosage: DAILY DOSE:  UNKNOWN
     Route: 065
  2. CLOMIPRAMINE [Suspect]
     Indication: DEPRESSION
     Dosage: DAILY DOSE:  UNKNOWN
     Route: 065
  3. LITHIUM CARBONATE [Suspect]
     Indication: ILL-DEFINED DISORDER
     Dosage: DAILY DOSE:  UNKNOWN
     Route: 065
  4. LEVOMEPROMAZINE [Suspect]
     Indication: PSYCHOTIC DISORDER
     Dosage: DAILY DOSE:  UNKNOWN
     Route: 065

REACTIONS (10)
  - CHILLS [None]
  - HYPERHIDROSIS [None]
  - HYPERREFLEXIA [None]
  - HYPERTHERMIA [None]
  - MENTAL STATUS CHANGES [None]
  - MYOCLONUS [None]
  - NEUROLEPTIC MALIGNANT SYNDROME [None]
  - RESTLESSNESS [None]
  - RHABDOMYOLYSIS [None]
  - TREMOR [None]
